FAERS Safety Report 5794939-2 (Version None)
Quarter: 2008Q2

REPORT INFORMATION
  Report Type: 
  Country: None (occurrence: None)
  Receive Date: 20080627
  Receipt Date: 20080627
  Transmission Date: 20081010
  Serious: No
  Sender: FDA-Public Use
  Company Number: None

PATIENT
  Age: 34 Year
  Sex: Female
  Weight: 99.7913 kg

DRUGS (3)
  1. FINACEA [Suspect]
     Indication: ERYTHEMA
     Dosage: 3 GRAMS 2 TIMES DAILY TOP
     Route: 061
  2. FINACEA [Suspect]
     Indication: PRURITUS
     Dosage: 3 GRAMS 2 TIMES DAILY TOP
     Route: 061
  3. FINACEA [Suspect]
     Indication: ROSACEA
     Dosage: 3 GRAMS 2 TIMES DAILY TOP
     Route: 061

REACTIONS (5)
  - BURNING SENSATION [None]
  - RASH ERYTHEMATOUS [None]
  - RASH PRURITIC [None]
  - SKIN WARM [None]
  - SWELLING [None]
